FAERS Safety Report 21749714 (Version 1)
Quarter: 2022Q4

REPORT INFORMATION
  Report Type: Spontaneous
  Country: CN (occurrence: CN)
  Receive Date: 20221219
  Receipt Date: 20221219
  Transmission Date: 20230113
  Serious: Yes (Other)
  Sender: FDA-Public Use
  Company Number: CN-NAPPMUNDI-GBR-2022-0103809

PATIENT
  Age: 77 Year
  Sex: Female
  Weight: 60 kg

DRUGS (7)
  1. BUPRENORPHINE [Suspect]
     Active Substance: BUPRENORPHINE
     Indication: Incisional hernia
     Dosage: 5 MILLIGRAM, WEEKLY (EXTERNAL USE)
     Route: 065
     Dates: start: 20221203, end: 20221204
  2. FLURBIPROFEN AXETIL [Suspect]
     Active Substance: FLURBIPROFEN AXETIL
     Indication: Incisional hernia
     Dosage: 5 MILLILITER, BID
     Route: 042
     Dates: start: 20221201, end: 20221205
  3. ACETYLCYSTEINE [Concomitant]
     Active Substance: ACETYLCYSTEINE
     Indication: Incisional hernia
     Dosage: 3 MILLILITER, BID, RESPIRATORY (INHALATION)
     Dates: start: 20221202, end: 20221213
  4. BUDESONIDE [Concomitant]
     Active Substance: BUDESONIDE
     Indication: Incisional hernia
     Dosage: 2 MILLILITER, BID, RESPIRATORY (INHALATION)
     Dates: start: 20221202, end: 20221213
  5. SODIUM CHLORIDE [Concomitant]
     Active Substance: SODIUM CHLORIDE
     Indication: Vehicle solution use
     Dosage: 20 MILLILITER, BID
     Route: 042
     Dates: start: 20221201, end: 20221213
  6. SODIUM CHLORIDE [Concomitant]
     Active Substance: SODIUM CHLORIDE
     Dosage: 100 MILLILITER, BID
     Route: 042
     Dates: start: 20221201, end: 20221205
  7. AMBROXOL HYDROCHLORIDE [Concomitant]
     Active Substance: AMBROXOL HYDROCHLORIDE
     Indication: Incisional hernia
     Dosage: 4 MILLILITER, BID
     Route: 042
     Dates: start: 20221201, end: 20221213

REACTIONS (1)
  - Dermatitis [Recovered/Resolved]

NARRATIVE: CASE EVENT DATE: 20221204
